FAERS Safety Report 11394698 (Version 8)
Quarter: 2020Q2

REPORT INFORMATION
  Report Type: Spontaneous
  Country: CA (occurrence: CA)
  Receive Date: 20150819
  Receipt Date: 20200525
  Transmission Date: 20200713
  Serious: Yes (Other)
  Sender: FDA-Public Use
  Company Number: CA-ROCHE-1620037

PATIENT
  Sex: Female
  Weight: 72 kg

DRUGS (20)
  1. ACTEMRA [Suspect]
     Active Substance: TOCILIZUMAB
     Indication: PRODUCT USED FOR UNKNOWN INDICATION
     Dosage: THERAPY DURATION: 11 MONTHS
     Route: 065
     Dates: start: 201402, end: 201412
  2. CYCLOSPORIN [Suspect]
     Active Substance: CYCLOSPORINE
     Indication: PRODUCT USED FOR UNKNOWN INDICATION
     Route: 065
  3. ARAVA [Suspect]
     Active Substance: LEFLUNOMIDE
     Indication: PRODUCT USED FOR UNKNOWN INDICATION
     Route: 065
     Dates: start: 2009
  4. SULFASALAZINE. [Suspect]
     Active Substance: SULFASALAZINE
     Indication: PRODUCT USED FOR UNKNOWN INDICATION
     Route: 065
  5. RITUXIMAB. [Suspect]
     Active Substance: RITUXIMAB
     Indication: PRODUCT USED FOR UNKNOWN INDICATION
     Route: 065
  6. ENBREL [Suspect]
     Active Substance: ETANERCEPT
     Route: 058
  7. AZATHIOPRINE. [Suspect]
     Active Substance: AZATHIOPRINE
     Indication: PRODUCT USED FOR UNKNOWN INDICATION
     Route: 065
  8. ENBREL [Suspect]
     Active Substance: ETANERCEPT
     Indication: RHEUMATOID ARTHRITIS
     Route: 058
     Dates: start: 2004, end: 2005
  9. RITUXAN [Suspect]
     Active Substance: RITUXIMAB
     Indication: PRODUCT USED FOR UNKNOWN INDICATION
     Route: 042
     Dates: start: 200906, end: 201101
  10. ENBREL [Suspect]
     Active Substance: ETANERCEPT
     Route: 065
  11. METHOTREXATE. [Suspect]
     Active Substance: METHOTREXATE
     Indication: RHEUMATOID ARTHRITIS
     Route: 065
  12. IMURAN [Suspect]
     Active Substance: AZATHIOPRINE
     Indication: PRODUCT USED FOR UNKNOWN INDICATION
     Route: 065
     Dates: start: 2004, end: 2005
  13. METHOTREXATE SODIUM. [Suspect]
     Active Substance: METHOTREXATE SODIUM
     Indication: RHEUMATOID ARTHRITIS
     Route: 065
     Dates: start: 2009
  14. ORENCIA [Suspect]
     Active Substance: ABATACEPT
     Indication: PRODUCT USED FOR UNKNOWN INDICATION
     Dosage: THERAPY DURATION: 4 YEARS
     Route: 065
     Dates: start: 200106, end: 201401
  15. ORENCIA [Suspect]
     Active Substance: ABATACEPT
     Route: 042
  16. INFLIXIMAB [Suspect]
     Active Substance: INFLIXIMAB
     Indication: PRODUCT USED FOR UNKNOWN INDICATION
     Route: 065
     Dates: start: 200603, end: 200704
  17. SODIUM AUROTHIOMALATE [Suspect]
     Active Substance: GOLD SODIUM THIOMALATE
     Indication: PRODUCT USED FOR UNKNOWN INDICATION
     Route: 030
  18. ENBREL [Suspect]
     Active Substance: ETANERCEPT
     Dosage: THERAPY DURATION: 366.0
     Route: 058
  19. ENBREL [Suspect]
     Active Substance: ETANERCEPT
     Route: 058
  20. REMICADE [Suspect]
     Active Substance: INFLIXIMAB
     Indication: PRODUCT USED FOR UNKNOWN INDICATION
     Dosage: THERAPY DURATION: 2 YEARS
     Route: 042
     Dates: start: 20060301, end: 200704

REACTIONS (19)
  - Surgery [Unknown]
  - Influenza [Unknown]
  - Drug ineffective [Unknown]
  - Impaired gastric emptying [Not Recovered/Not Resolved]
  - Ankylosing spondylitis [Unknown]
  - Arthropathy [Unknown]
  - Osteoarthritis [Unknown]
  - Adverse event [Not Recovered/Not Resolved]
  - Renal impairment [Unknown]
  - Treatment failure [Unknown]
  - Demyelination [Unknown]
  - Diabetes mellitus [Unknown]
  - Therapeutic product effect decreased [Unknown]
  - Drug hypersensitivity [Unknown]
  - Impaired gastric emptying [Unknown]
  - Rheumatoid arthritis [Not Recovered/Not Resolved]
  - Ill-defined disorder [Unknown]
  - Condition aggravated [Not Recovered/Not Resolved]
  - Therapeutic response decreased [Not Recovered/Not Resolved]
